FAERS Safety Report 17368755 (Version 15)
Quarter: 2020Q3

REPORT INFORMATION
  Report Type: Report from Study
  Country: US (occurrence: US)
  Receive Date: 20200204
  Receipt Date: 20200727
  Transmission Date: 20201102
  Serious: Yes (Hospitalization)
  Sender: FDA-Public Use
  Company Number: US-ACTELION-A-NJ2020-200049

PATIENT
  Age: 62 Year
  Sex: Female
  Weight: 60.32 kg

DRUGS (5)
  1. REMODULIN [Suspect]
     Active Substance: TREPROSTINIL
     Indication: PRODUCT USED FOR UNKNOWN INDICATION
     Dosage: 82 NG/KG, PER MIN
     Route: 058
  2. REVATIO [Concomitant]
     Active Substance: SILDENAFIL CITRATE
  3. OXYGEN. [Concomitant]
     Active Substance: OXYGEN
     Dosage: 2 L CONTINUOUS
  4. SILDENAFIL CITRATE. [Concomitant]
     Active Substance: SILDENAFIL CITRATE
  5. OPSUMIT [Suspect]
     Active Substance: MACITENTAN
     Indication: PULMONARY ARTERIAL HYPERTENSION
     Dosage: 10 MG, QD
     Route: 048

REACTIONS (29)
  - Infusion site infection [Unknown]
  - Catheter site related reaction [Unknown]
  - Dyspnoea [Unknown]
  - Pulmonary arterial hypertension [Unknown]
  - Condition aggravated [Unknown]
  - Infusion site swelling [Unknown]
  - Dyspnoea at rest [Not Recovered/Not Resolved]
  - Chest pain [Unknown]
  - Abdominal pain [Unknown]
  - Presyncope [Unknown]
  - Haemoglobin decreased [Unknown]
  - Hospitalisation [Unknown]
  - Ulcer [Unknown]
  - Infusion site discharge [Unknown]
  - Emergency care [Unknown]
  - Dyspnoea exertional [Not Recovered/Not Resolved]
  - Cough [Unknown]
  - Haemorrhage [Unknown]
  - Device infusion issue [Unknown]
  - Infusion site mass [Unknown]
  - Vertigo [Unknown]
  - Pneumonia [Unknown]
  - Dizziness [Unknown]
  - Fatigue [Unknown]
  - Dysphonia [Unknown]
  - Infusion site pain [Unknown]
  - Infusion site induration [Unknown]
  - Nausea [Unknown]
  - Palpitations [Unknown]

NARRATIVE: CASE EVENT DATE: 20200224
